FAERS Safety Report 5239910-4 (Version None)
Quarter: 2007Q1

REPORT INFORMATION
  Report Type: 
  Country: None (occurrence: None)
  Receive Date: 20070216
  Receipt Date: 20070208
  Transmission Date: 20070707
  Serious: Yes (Other)
  Sender: FDA-Public Use
  Company Number: FR-PFIZER INC-2006151854

PATIENT
  Sex: Female

DRUGS (4)
  1. XALATAN [Suspect]
  2. XALCOM [Suspect]
  3. ALL OTHER THERAPEUTIC PRODUCTS [Concomitant]
  4. ACEBUTOLOL [Concomitant]

REACTIONS (6)
  - DYSPHAGIA [None]
  - GASTROOESOPHAGEAL REFLUX DISEASE [None]
  - HYPERSENSITIVITY [None]
  - PHARYNGOLARYNGEAL PAIN [None]
  - SUFFOCATION FEELING [None]
  - VOCAL CORD PARALYSIS [None]
